FAERS Safety Report 7064822-3 (Version None)
Quarter: 2010Q4

REPORT INFORMATION
  Report Type: 
  Country: None (occurrence: None)
  Receive Date: 20101027
  Receipt Date: 19870428
  Transmission Date: 20110411
  Serious: Yes (Death, Hospitalization, Disabling)
  Sender: FDA-Public Use
  Company Number: US-ROCHE-870200042001

PATIENT
  Age: 79 Year
  Sex: Male

DRUGS (4)
  1. ISOTRETINOIN [Suspect]
     Route: 048
     Dates: start: 19860812, end: 19861014
  2. PREDNISONE [Concomitant]
     Route: 048
  3. LASIX [Concomitant]
     Route: 048
  4. DYAZIDE [Concomitant]
     Route: 048

REACTIONS (2)
  - ERYTHROLEUKAEMIA [None]
  - PULMONARY FIBROSIS [None]
